FAERS Safety Report 20188772 (Version 1)
Quarter: 2021Q4

REPORT INFORMATION
  Report Type: Spontaneous
  Country: CO (occurrence: CO)
  Receive Date: 20211215
  Receipt Date: 20211215
  Transmission Date: 20220303
  Serious: No
  Sender: FDA-Public Use
  Company Number: CO-PFIZER INC-202100993398

PATIENT
  Sex: Female

DRUGS (2)
  1. GENOTROPIN [Suspect]
     Active Substance: SOMATROPIN
     Indication: Turner^s syndrome
     Dosage: 1.4 MG, UNKNOWN FREQUENCY
     Route: 058
     Dates: start: 20150414
  2. GENOTROPIN [Suspect]
     Active Substance: SOMATROPIN
     Indication: Renal fusion anomaly

REACTIONS (4)
  - Drug dose omission by device [Unknown]
  - Device use issue [Unknown]
  - Device information output issue [Unknown]
  - Device failure [Unknown]

NARRATIVE: CASE EVENT DATE: 20210729
